FAERS Safety Report 18629041 (Version 1)
Quarter: 2020Q4

REPORT INFORMATION
  Report Type: Spontaneous
  Country: CN (occurrence: CN)
  Receive Date: 20201217
  Receipt Date: 20201217
  Transmission Date: 20210114
  Serious: Yes (Hospitalization)
  Sender: FDA-Public Use
  Company Number: CN-PFIZER INC-2020498957

PATIENT
  Age: 65 Year
  Sex: Female
  Weight: 53 kg

DRUGS (1)
  1. SUNITINIB MALATE. [Suspect]
     Active Substance: SUNITINIB MALATE
     Indication: GASTRIC CANCER
     Dosage: 37.5 MG, 1X/DAY
     Route: 048
     Dates: start: 20201113, end: 20201202

REACTIONS (5)
  - Eating disorder [Recovering/Resolving]
  - Mouth ulceration [Recovering/Resolving]
  - Platelet count decreased [Recovering/Resolving]
  - Oropharyngeal pain [Recovering/Resolving]
  - Aphasia [Recovering/Resolving]

NARRATIVE: CASE EVENT DATE: 20201130
